FAERS Safety Report 4996229-4 (Version None)
Quarter: 2006Q2

REPORT INFORMATION
  Report Type: 
  Country: None (occurrence: None)
  Receive Date: 20060509
  Receipt Date: 20060421
  Transmission Date: 20061013
  Serious: Yes (Other)
  Sender: FDA-Public Use
  Company Number: PHEH2006US05304

PATIENT
  Age: 57 Year
  Sex: Male
  Weight: 69.387 kg

DRUGS (8)
  1. LAMISIL [Suspect]
     Indication: CANDIDIASIS
     Dosage: 250 MG, QD
     Route: 048
     Dates: start: 20051001, end: 20051101
  2. ALLOPURINOL [Concomitant]
     Indication: GOUT
  3. COLCHICINE [Concomitant]
     Indication: GOUT
  4. NEBUTONE [Concomitant]
  5. HYDROCODONE [Concomitant]
  6. INDOCIN [Concomitant]
  7. WELLBUTRIN XL [Concomitant]
  8. ULTRAM [Concomitant]

REACTIONS (5)
  - AGEUSIA [None]
  - BACK PAIN [None]
  - BODY HEIGHT DECREASED [None]
  - ORAL DISCOMFORT [None]
  - OSTEOARTHRITIS [None]
